FAERS Safety Report 5704990-6 (Version None)
Quarter: 2008Q2

REPORT INFORMATION
  Report Type: 
  Country: None (occurrence: None)
  Receive Date: 20080414
  Receipt Date: 20080403
  Transmission Date: 20081010
  Serious: Yes (Life-Threatening, Hospitalization)
  Sender: FDA-Public Use
  Company Number: AE-AMGEN-US273371

PATIENT
  Sex: Female
  Weight: 90 kg

DRUGS (5)
  1. ENBREL [Suspect]
     Indication: RHEUMATOID ARTHRITIS
     Route: 058
     Dates: start: 20070601, end: 20080301
  2. ENBREL [Suspect]
     Indication: TEMPORAL ARTERITIS
  3. METHOTREXATE [Suspect]
     Indication: RHEUMATOID ARTHRITIS
     Dates: start: 20070101, end: 20080101
  4. METHOTREXATE [Suspect]
     Indication: TEMPORAL ARTERITIS
     Dates: start: 20080101
  5. FOLIC ACID [Concomitant]

REACTIONS (3)
  - ASTHMA [None]
  - PNEUMONIA [None]
  - RESPIRATORY FAILURE [None]
